FAERS Safety Report 18099765 (Version 1)
Quarter: 2020Q3

REPORT INFORMATION
  Report Type: Spontaneous
  Country: SE (occurrence: SE)
  Receive Date: 20200731
  Receipt Date: 20200731
  Transmission Date: 20201103
  Serious: Yes (Other)
  Sender: FDA-Public Use
  Company Number: NVSC2020SE213808

PATIENT
  Age: 41 Year
  Sex: Male
  Weight: 130 kg

DRUGS (1)
  1. DICLOFENAC [Suspect]
     Active Substance: DICLOFENAC
     Indication: NERVE COMPRESSION
     Dosage: UNK (STRYKA 50 MG, DOSERING 2?3 GGR/DAG^)
     Route: 065
     Dates: start: 20191110

REACTIONS (3)
  - Orthopnoea [Not Recovered/Not Resolved]
  - Memory impairment [Not Recovered/Not Resolved]
  - Palpitations [Not Recovered/Not Resolved]

NARRATIVE: CASE EVENT DATE: 202003
